FAERS Safety Report 9249840 (Version 1)
Quarter: 2013Q2

REPORT INFORMATION
  Report Type: Spontaneous
  Country: FR (occurrence: FR)
  Receive Date: 20130423
  Receipt Date: 20130423
  Transmission Date: 20140414
  Serious: Yes (Disabling)
  Sender: FDA-Public Use
  Company Number: PHHY2013FR037997

PATIENT
  Age: 53 Year
  Sex: Female

DRUGS (2)
  1. VOLTARENE LP [Suspect]
     Indication: PAIN IN EXTREMITY
     Dosage: 75 MG, QD
     Route: 048
     Dates: start: 20130302, end: 20130305
  2. KETOPROFENE BIOGARAN [Suspect]
     Indication: PAIN IN EXTREMITY
     Dosage: UNK UKN, BID
     Route: 061
     Dates: start: 20130302, end: 20130305

REACTIONS (4)
  - Application site inflammation [Recovering/Resolving]
  - Application site vesicles [Recovering/Resolving]
  - Application site oedema [Recovering/Resolving]
  - Application site pain [Recovering/Resolving]
